FAERS Safety Report 11113327 (Version 3)
Quarter: 2015Q3

REPORT INFORMATION
  Report Type: Spontaneous
  Country: US (occurrence: US)
  Receive Date: 20150514
  Receipt Date: 20150928
  Transmission Date: 20151125
  Serious: Yes (Hospitalization, Disabling, Other)
  Sender: FDA-Public Use
  Company Number: US-009507513-1204USA00519

PATIENT
  Sex: Female
  Weight: 58.96 kg

DRUGS (10)
  1. FOSAMAX [Suspect]
     Active Substance: ALENDRONATE SODIUM
     Indication: OSTEOPOROSIS POSTMENOPAUSAL
     Dosage: 10 MG, UNK
     Route: 048
     Dates: start: 20060523, end: 20070530
  2. FOSAMAX [Suspect]
     Active Substance: ALENDRONATE SODIUM
     Indication: OSTEOPOROSIS POSTMENOPAUSAL
  3. TOPIRAMATE. [Concomitant]
     Active Substance: TOPIRAMATE
     Indication: SEIZURE
     Dosage: UNK, UNKNOWN
     Dates: start: 1960
  4. FOSAMAX [Suspect]
     Active Substance: ALENDRONATE SODIUM
     Dosage: 70 UNK, UNK
     Route: 048
     Dates: start: 20070611, end: 20080205
  5. FOSAMAX [Suspect]
     Active Substance: ALENDRONATE SODIUM
     Dosage: 70 MG, QD
     Route: 048
     Dates: start: 2008
  6. DILANTIN [Concomitant]
     Active Substance: PHENYTOIN
     Indication: SEIZURE
     Dosage: 200-250 MG, QD
     Dates: start: 1960
  7. ALENDRONATE SODIUM. [Suspect]
     Active Substance: ALENDRONATE SODIUM
     Dosage: 70 MG, UNKNOWN
     Route: 048
     Dates: start: 20080307, end: 20100913
  8. FOSAMAX [Suspect]
     Active Substance: ALENDRONATE SODIUM
     Indication: OSTEOPOROSIS PROPHYLAXIS
     Dosage: 10 MG, QD
     Route: 048
     Dates: start: 20010117, end: 20040123
  9. FOSAMAX [Suspect]
     Active Substance: ALENDRONATE SODIUM
     Indication: OSTEOPOROSIS PROPHYLAXIS
     Dosage: 70 MG, UNKNOWN
     Route: 048
     Dates: start: 200803, end: 201009
  10. VITAMINS (UNSPECIFIED) [Concomitant]
     Active Substance: VITAMINS
     Dosage: UNK, UNKNOWN
     Route: 065
     Dates: start: 2000

REACTIONS (36)
  - Intramedullary rod insertion [Unknown]
  - Tendonitis [Unknown]
  - Migraine [Unknown]
  - Back pain [Not Recovered/Not Resolved]
  - Arthralgia [Unknown]
  - Low turnover osteopathy [Unknown]
  - Rib fracture [Unknown]
  - Anaemia postoperative [Unknown]
  - Hypoxia [Unknown]
  - Osteoporosis [Unknown]
  - Intramedullary rod insertion [Unknown]
  - Measles [Unknown]
  - Bursitis [Unknown]
  - Constipation [Recovered/Resolved]
  - Bursitis [Unknown]
  - Tachycardia [Unknown]
  - Skin abrasion [Unknown]
  - Abdominal discomfort [Unknown]
  - Radius fracture [Unknown]
  - Chest pain [Unknown]
  - Breast pain [Recovered/Resolved]
  - Vitamin D deficiency [Unknown]
  - Bursa removal [Unknown]
  - Medical device removal [Unknown]
  - Femur fracture [Recovered/Resolved]
  - Varicella [Unknown]
  - Osteomalacia [Unknown]
  - Hyperlipidaemia [Unknown]
  - Femur fracture [Recovered/Resolved]
  - Mumps [Unknown]
  - Fall [Unknown]
  - Irritable bowel syndrome [Unknown]
  - Anxiety [Unknown]
  - Gastrooesophageal reflux disease [Unknown]
  - Inappropriate schedule of drug administration [Unknown]
  - Ligament sprain [Unknown]

NARRATIVE: CASE EVENT DATE: 200310
